FAERS Safety Report 5504474-4 (Version None)
Quarter: 2007Q4

REPORT INFORMATION
  Report Type: 
  Country: None (occurrence: None)
  Receive Date: 20071031
  Receipt Date: 20071016
  Transmission Date: 20080405
  Serious: Yes (Other)
  Sender: FDA-Public Use
  Company Number: 100#08#2007-04066

PATIENT
  Age: 52 Year
  Sex: Male

DRUGS (11)
  1. METHOTREXATE [Suspect]
     Indication: B PRECURSOR TYPE ACUTE LEUKAEMIA
     Dosage: INTRATHECAL
     Route: 037
  2. METHOTREXATE [Suspect]
     Indication: B PRECURSOR TYPE ACUTE LEUKAEMIA
     Dosage: INTRATHECAL
     Route: 037
  3. DEXAMETHASONE [Suspect]
     Indication: B PRECURSOR TYPE ACUTE LEUKAEMIA
  4. CYCLOPHOSPHAMIDE [Concomitant]
     Indication: B PRECURSOR TYPE ACUTE LEUKAEMIA
  5. CYCLOPHOSPHAMIDE [Concomitant]
     Indication: B PRECURSOR TYPE ACUTE LEUKAEMIA
  6. VINCRISTINE [Suspect]
     Indication: B PRECURSOR TYPE ACUTE LEUKAEMIA
  7. DAUNORUBICIN HCL [Suspect]
     Indication: B PRECURSOR TYPE ACUTE LEUKAEMIA
  8. ASPARAGINASE(ASPARAGINASE) (ASPARAGINASE) [Suspect]
     Indication: B PRECURSOR TYPE ACUTE LEUKAEMIA
  9. CYTARABINE [Suspect]
     Indication: B PRECURSOR TYPE ACUTE LEUKAEMIA
  10. MERCAPTOPURINE [Suspect]
     Indication: B PRECURSOR TYPE ACUTE LEUKAEMIA
  11. LAMIVUDINE [Concomitant]

REACTIONS (7)
  - BONE MARROW TRANSPLANT [None]
  - CHRONIC GRAFT VERSUS HOST DISEASE [None]
  - DRUG TOXICITY [None]
  - HEPATOTOXICITY [None]
  - JAUNDICE CHOLESTATIC [None]
  - LEUKAEMIA [None]
  - NO THERAPEUTIC RESPONSE [None]
